FAERS Safety Report 5600343-X (Version None)
Quarter: 2008Q1

REPORT INFORMATION
  Report Type: 
  Country: None (occurrence: None)
  Receive Date: 20080123
  Receipt Date: 20080115
  Transmission Date: 20080703
  Serious: Yes (Hospitalization)
  Sender: FDA-Public Use
  Company Number: CO-ABBOTT-08P-036-0433609-00

PATIENT
  Age: 28 Year
  Sex: Male
  Weight: 71 kg

DRUGS (1)
  1. SIBUTRAMINE [Suspect]
     Indication: BODY DYSMORPHIC DISORDER

REACTIONS (4)
  - AFFECTIVE DISORDER [None]
  - BLOOD PRESSURE FLUCTUATION [None]
  - HEART RATE ABNORMAL [None]
  - PSYCHOTIC BEHAVIOUR [None]
